FAERS Safety Report 4342258-3 (Version None)
Quarter: 2004Q2

REPORT INFORMATION
  Report Type: 
  Country: None (occurrence: None)
  Receive Date: 20040420
  Receipt Date: 20040420
  Transmission Date: 20050107
  Serious: No
  Sender: FDA-Public Use
  Company Number: None

PATIENT
  Age: 6 Month
  Sex: Male
  Weight: 6.6679 kg

DRUGS (1)
  1. XOPENEX [Suspect]
     Indication: BRONCHIOLITIS
     Dosage: 0.63 MG INHALED TID
     Route: 055
     Dates: start: 20040417

REACTIONS (1)
  - PHARMACEUTICAL PRODUCT COMPLAINT [None]
